FAERS Safety Report 7997145-6 (Version None)
Quarter: 2011Q4

REPORT INFORMATION
  Report Type: 
  Country: None (occurrence: None)
  Receive Date: 20111221
  Receipt Date: 20111213
  Transmission Date: 20120403
  Serious: Yes (Other)
  Sender: FDA-Public Use
  Company Number: US-ASTELLAS-2011US008399

PATIENT

DRUGS (9)
  1. PROGRAF [Suspect]
     Indication: LIVER TRANSPLANT
     Dosage: 1 MG, UID/QD
     Route: 048
     Dates: start: 20030527
  2. ALTACE [Concomitant]
     Indication: BLOOD PRESSURE
     Dosage: UNK
     Route: 065
  3. BACTRIM [Concomitant]
     Indication: PRODUCT USED FOR UNKNOWN INDICATION
     Dosage: UNK
     Route: 065
  4. ASPIRIN [Concomitant]
     Indication: PRODUCT USED FOR UNKNOWN INDICATION
     Dosage: UNK
     Route: 065
  5. RANITIDINE [Concomitant]
     Indication: PRODUCT USED FOR UNKNOWN INDICATION
     Dosage: UNK
     Route: 065
  6. URSODIOL [Concomitant]
     Indication: LIVER DISORDER
     Dosage: UNK
     Route: 065
  7. NOVOLOG [Concomitant]
     Indication: DIABETES MELLITUS
     Dosage: UNK
     Route: 065
  8. ANTIDEPRESSANTS [Concomitant]
     Indication: DEPRESSION
     Dosage: UNK
     Route: 065
  9. MAGNESIUM OXIDE [Concomitant]
     Indication: PRODUCT USED FOR UNKNOWN INDICATION
     Dosage: UNK
     Route: 065

REACTIONS (2)
  - LYMPHADENOPATHY [None]
  - LUNG DISORDER [None]
